FAERS Safety Report 8333957 (Version 2)
Quarter: 2015Q3

REPORT INFORMATION
  Report Type: Spontaneous
  Country: FR (occurrence: FR)
  Receive Date: 20120112
  Receipt Date: 20150804
  Transmission Date: 20151125
  Serious: Yes (Other)
  Sender: FDA-Public Use
  Company Number: FR-ELI_LILLY_AND_COMPANY-FR201201000819

PATIENT
  Age: 73 Year
  Sex: Female

DRUGS (6)
  1. ALIMTA [Suspect]
     Active Substance: PEMETREXED DISODIUM
     Indication: PLEURAL MESOTHELIOMA
     Dosage: 875 MG, CYCLICAL
     Route: 042
     Dates: start: 20110207, end: 201106
  2. CORTANCYL [Concomitant]
     Active Substance: PREDNISONE
     Dosage: 20 MG, EACH MORNING
     Route: 065
  3. SOLU-MEDROL [Suspect]
     Active Substance: METHYLPREDNISOLONE SODIUM SUCCINATE
     Indication: PLEURAL MESOTHELIOMA
     Dosage: 40 MG, UNKNOWN
     Route: 042
     Dates: start: 20110207, end: 20111103
  4. ALIMTA [Suspect]
     Active Substance: PEMETREXED DISODIUM
     Dosage: 875 MG, CYCLICAL
     Route: 042
     Dates: start: 20110805, end: 20111103
  5. CORTANCYL [Concomitant]
     Active Substance: PREDNISONE
     Dosage: 60 MG, UNK
     Route: 065
  6. CISPLATINE [Concomitant]
     Active Substance: CISPLATIN
     Dosage: UNK, UNKNOWN
     Route: 065

REACTIONS (1)
  - Dermo-hypodermitis [Not Recovered/Not Resolved]

NARRATIVE: CASE EVENT DATE: 20110905
